FAERS Safety Report 7627944-1 (Version None)
Quarter: 2011Q3

REPORT INFORMATION
  Report Type: 
  Country: None (occurrence: None)
  Receive Date: 20110722
  Receipt Date: 20110718
  Transmission Date: 20111222
  Serious: Yes (Hospitalization)
  Sender: FDA-Public Use
  Company Number: FR-BRISTOL-MYERS SQUIBB COMPANY-15817133

PATIENT
  Age: 74 Year
  Sex: Male

DRUGS (11)
  1. REPAGLINIDE [Concomitant]
  2. LEVEMIR [Concomitant]
  3. ISOPTIN [Concomitant]
  4. CRESTOR [Concomitant]
  5. NOVORAPID [Concomitant]
  6. ACETAMINOPHEN AND TRAMADOL HCL [Concomitant]
  7. PREDNISOLONE [Concomitant]
     Indication: ANGIOSARCOMA
     Dates: start: 20110324
  8. PLAVIX [Concomitant]
  9. TAXOL [Suspect]
     Indication: ANGIOSARCOMA
     Dosage: 2 ND COURSE ON MAR2011,7TH COURSE ON 5MAY2011
     Route: 041
     Dates: start: 20110324, end: 20110505
  10. ONDANSERTRON HYDROCHLORIDE [Concomitant]
     Indication: ANGIOSARCOMA
     Dates: start: 20110324
  11. METFORMIN HCL [Concomitant]

REACTIONS (3)
  - STEVENS-JOHNSON SYNDROME [None]
  - ONYCHOMADESIS [None]
  - PARONYCHIA [None]
